FAERS Safety Report 20033217 (Version 1)
Quarter: 2021Q4

REPORT INFORMATION
  Report Type: Spontaneous
  Country: PT (occurrence: PT)
  Receive Date: 20211104
  Receipt Date: 20211104
  Transmission Date: 20220303
  Serious: Yes (Death, Other)
  Sender: FDA-Public Use
  Company Number: PT-AMGEN-PRTSP2021167933

PATIENT

DRUGS (1)
  1. ARANESP [Suspect]
     Active Substance: DARBEPOETIN ALFA
     Indication: Nephrogenic anaemia
     Dosage: UNK
     Route: 065

REACTIONS (16)
  - Cardiac disorder [Fatal]
  - Nervous system disorder [Fatal]
  - Infection [Fatal]
  - Haemorrhage [Unknown]
  - Arteriovenous fistula thrombosis [Unknown]
  - Sepsis [Unknown]
  - Muscle spasms [Unknown]
  - Inflammation [Unknown]
  - Therapy partial responder [Unknown]
  - Hypertension [Unknown]
  - Procedural hypotension [Unknown]
  - Nasopharyngitis [Unknown]
  - Urinary tract infection [Unknown]
  - Arteriovenous fistula site complication [Unknown]
  - Diarrhoea [Unknown]
  - Bronchitis [Unknown]
